FAERS Safety Report 6263523-9 (Version None)
Quarter: 2009Q3

REPORT INFORMATION
  Report Type: 
  Country: None (occurrence: None)
  Receive Date: 20090710
  Receipt Date: 20090410
  Transmission Date: 20100115
  Serious: No
  Sender: FDA-Public Use
  Company Number: A0777176A

PATIENT
  Age: 61 Year
  Sex: Female

DRUGS (1)
  1. TYKERB [Suspect]
     Indication: DRUG USE FOR UNKNOWN INDICATION
     Route: 065

REACTIONS (1)
  - DIARRHOEA [None]
